FAERS Safety Report 8965434 (Version 1)
Quarter: 2012Q4

REPORT INFORMATION
  Report Type: 
  Country: US (occurrence: US)
  Receive Date: 20121213
  Receipt Date: 20121213
  Transmission Date: 20130627
  Serious: Yes (Death, Other)
  Sender: FDA-Public Use
  Company Number: US-PFIZER INC-2012309840

PATIENT
  Age: 77 Year
  Sex: Male

DRUGS (1)
  1. VFEND [Suspect]
     Dosage: 1-200mg BID
     Dates: start: 20120814

REACTIONS (1)
  - Intracranial aneurysm [Fatal]
